FAERS Safety Report 9001846 (Version 1)
Quarter: 2013Q1

REPORT INFORMATION
  Report Type: Report from Study
  Country: DE (occurrence: DE)
  Receive Date: 20130107
  Receipt Date: 20130107
  Transmission Date: 20140127
  Serious: Yes (Hospitalization)
  Sender: FDA-Public Use
  Company Number: DE-ROCHE-1175952

PATIENT
  Sex: Male

DRUGS (14)
  1. ALTEPLASE [Suspect]
     Indication: ACUTE MYOCARDIAL INFARCTION
     Route: 042
     Dates: start: 19940619, end: 19940619
  2. HEPARIN [Suspect]
     Route: 065
     Dates: start: 19940619, end: 19940621
  3. MOLSIDOMINE [Concomitant]
     Route: 065
  4. FAMOTIDINE [Concomitant]
     Route: 065
  5. MORPHINE [Concomitant]
     Route: 042
     Dates: start: 19940619, end: 19940619
  6. MORPHINE [Concomitant]
     Route: 058
     Dates: start: 19940619, end: 19940619
  7. BROMAZEPAM [Concomitant]
     Route: 048
     Dates: start: 19940619, end: 19940621
  8. CORVATON [Concomitant]
     Route: 065
     Dates: start: 19940619, end: 19940621
  9. BELOC MITE [Concomitant]
     Route: 048
     Dates: start: 19940620, end: 19940630
  10. ASPIRIN [Concomitant]
     Route: 048
     Dates: start: 19940619, end: 19940630
  11. GANOR [Concomitant]
     Route: 048
     Dates: start: 19940123, end: 19940630
  12. LASIX [Concomitant]
     Route: 048
     Dates: start: 19940623, end: 19940630
  13. EMBOLEX [Concomitant]
     Dosage: 1 ANZ
     Route: 058
  14. VOLTAREN [Concomitant]
     Route: 048
     Dates: start: 19940702, end: 19940704

REACTIONS (4)
  - Confusional state [Recovered/Resolved]
  - Haematoma [Recovered/Resolved]
  - Delirium tremens [Recovered/Resolved]
  - Haemoglobin decreased [Recovered/Resolved]
